FAERS Safety Report 8483540-8 (Version None)
Quarter: 2012Q3

REPORT INFORMATION
  Report Type: 
  Country: None (occurrence: None)
  Receive Date: 20120702
  Receipt Date: 20120627
  Transmission Date: 20120928
  Serious: Yes (Disabling)
  Sender: FDA-Public Use
  Company Number: US-MERCK-1207USA00061

PATIENT
  Age: 73 Year
  Sex: Female

DRUGS (2)
  1. FOSAMAX [Suspect]
     Route: 048
     Dates: start: 19970101, end: 20081001
  2. ALENDRONATE SODIUM [Suspect]
     Route: 048
     Dates: start: 20080101, end: 20101001

REACTIONS (3)
  - OSTEOPOROSIS [None]
  - LOW TURNOVER OSTEOPATHY [None]
  - FEMUR FRACTURE [None]
